FAERS Safety Report 5332409-6 (Version None)
Quarter: 2007Q1

REPORT INFORMATION
  Report Type: 
  Country: None (occurrence: None)
  Receive Date: 20070306
  Receipt Date: 20060417
  Transmission Date: 20070707
  Serious: Yes (Other)
  Sender: FDA-Public Use
  Company Number: A03200602419

PATIENT
  Sex: Female

DRUGS (2)
  1. PLAVIX [Suspect]
     Indication: STENT PLACEMENT
     Dosage: ORAL
     Route: 048
     Dates: start: 20060106, end: 20060313
  2. ZOCOR [Suspect]
     Dosage: ORAL
     Route: 048
     Dates: start: 20060106, end: 20060313

REACTIONS (2)
  - CORONARY ARTERY OCCLUSION [None]
  - DERMATITIS ALLERGIC [None]
